FAERS Safety Report 18423551 (Version 1)
Quarter: 2020Q4

REPORT INFORMATION
  Report Type: Spontaneous
  Country: FR (occurrence: DZ)
  Receive Date: 20201023
  Receipt Date: 20201023
  Transmission Date: 20210114
  Serious: Yes (Other)
  Sender: FDA-Public Use
  Company Number: FR-B.I. PHARMACEUTICALS,INC./RIDGEFIELD-2020-BI-055706

PATIENT
  Age: 93 Year
  Sex: Female

DRUGS (1)
  1. PRADAXA [Suspect]
     Active Substance: DABIGATRAN ETEXILATE MESYLATE
     Indication: ATRIAL FIBRILLATION
     Route: 065
     Dates: start: 201909

REACTIONS (5)
  - Haematemesis [Unknown]
  - Haemorrhage [Unknown]
  - Melaena [Unknown]
  - Prothrombin time shortened [Unknown]
  - Uterine prolapse [Unknown]

NARRATIVE: CASE EVENT DATE: 20201017
